FAERS Safety Report 12893580 (Version 1)
Quarter: 2016Q4

REPORT INFORMATION
  Report Type: Spontaneous
  Country: US (occurrence: US)
  Receive Date: 20161027
  Receipt Date: 20161027
  Transmission Date: 20170207
  Serious: Yes (Disabling, Other)
  Sender: FDA-Public Use
  Company Number: None

PATIENT
  Age: 44 Year
  Sex: Female
  Weight: 55.35 kg

DRUGS (2)
  1. OMEPRAZOLE. [Concomitant]
     Active Substance: OMEPRAZOLE
  2. METOCLOPRAMIDE 5MG [Suspect]
     Active Substance: METOCLOPRAMIDE
     Indication: IMPAIRED GASTRIC EMPTYING
     Dosage: ?          QUANTITY:1 TABLET(S);?
     Route: 048
     Dates: start: 20161013, end: 20161027

REACTIONS (9)
  - Arthralgia [None]
  - Headache [None]
  - Anger [None]
  - Tremor [None]
  - Blood glucose increased [None]
  - Irritability [None]
  - Crying [None]
  - Blood pressure decreased [None]
  - Confusional state [None]

NARRATIVE: CASE EVENT DATE: 20161023
